FAERS Safety Report 8445879-1 (Version None)
Quarter: 2012Q2

REPORT INFORMATION
  Report Type: 
  Country: None (occurrence: None)
  Receive Date: 20120618
  Receipt Date: 20120608
  Transmission Date: 20120825
  Serious: Yes (Other)
  Sender: FDA-Public Use
  Company Number: PHEH2012US007778

PATIENT
  Sex: Female

DRUGS (11)
  1. AMBIEN [Concomitant]
  2. AZILECT [Suspect]
  3. LEXAPRO [Concomitant]
  4. WELLBUTRIN [Concomitant]
  5. EXELON [Suspect]
     Dosage: 4.6 MG, DAILY
     Route: 062
  6. PLAVIX [Concomitant]
  7. NAPROXEN (ALEVE) [Concomitant]
  8. ZOCOR [Concomitant]
  9. LOPRESSOR [Concomitant]
  10. SYNTHROID [Concomitant]
  11. VICODIN [Concomitant]

REACTIONS (6)
  - TREMOR [None]
  - MUSCULOSKELETAL STIFFNESS [None]
  - FALL [None]
  - DIZZINESS [None]
  - ABNORMAL FAECES [None]
  - DEMENTIA [None]
